FAERS Safety Report 5748710-8 (Version None)
Quarter: 2008Q2

REPORT INFORMATION
  Report Type: 
  Country: None (occurrence: None)
  Receive Date: 20080521
  Receipt Date: 20080512
  Transmission Date: 20081010
  Serious: Yes (Other)
  Sender: FDA-Public Use
  Company Number: 82067

PATIENT
  Age: 34 Year
  Sex: Female

DRUGS (2)
  1. NAPROXEN [Suspect]
     Indication: TENOSYNOVITIS
     Dosage: 500MG/BID/ORAL
     Route: 048
     Dates: start: 20080409, end: 20080415
  2. LAMOTRIGINE [Suspect]
     Indication: EPILEPSY
     Dosage: 125MG/BID/ORAL
     Route: 048
     Dates: start: 20070101

REACTIONS (2)
  - DRUG EFFECT DECREASED [None]
  - EPILEPSY [None]
